FAERS Safety Report 21399288 (Version 1)
Quarter: 2022Q4

REPORT INFORMATION
  Report Type: Spontaneous
  Country: DE (occurrence: DE)
  Receive Date: 20221001
  Receipt Date: 20221001
  Transmission Date: 20230113
  Serious: Yes (Hospitalization)
  Sender: FDA-Public Use
  Company Number: DE-ADRED-07743-01

PATIENT
  Age: 62 Year
  Sex: Male
  Weight: 100 kg

DRUGS (3)
  1. LEVOTHYROXINE SODIUM [Suspect]
     Active Substance: LEVOTHYROXINE SODIUM
     Indication: Product used for unknown indication
     Dosage: 125 MCG, CURRENTLY PAUSED FOR A WEEK
  2. METAMIZOL [Concomitant]
     Active Substance: METAMIZOLE SODIUM
     Indication: Product used for unknown indication
     Dosage: IF NECESSARY
  3. RAMIPRIL [Concomitant]
     Active Substance: RAMIPRIL
     Indication: Product used for unknown indication
     Dosage: 2.5 MILLIGRAM DAILY; 2.5 MG, 1-0-0-0

REACTIONS (6)
  - Chest discomfort [Unknown]
  - Cough [Unknown]
  - Acute coronary syndrome [Unknown]
  - Dyspnoea [Unknown]
  - Angina pectoris [Unknown]
  - Medication error [Unknown]

NARRATIVE: CASE EVENT DATE: 20210913
